FAERS Safety Report 12472099 (Version 1)
Quarter: 2016Q2

REPORT INFORMATION
  Report Type: Spontaneous
  Country: US (occurrence: None)
  Receive Date: 20160615
  Receipt Date: 20160615
  Transmission Date: 20160815
  Serious: Yes (Hospitalization)
  Sender: FDA-Public Use
  Company Number: None

PATIENT
  Age: 79 Year
  Sex: Male
  Weight: 90.4 kg

DRUGS (13)
  1. COREG [Concomitant]
     Active Substance: CARVEDILOL
  2. FLAGYL [Concomitant]
     Active Substance: METRONIDAZOLE\METRONIDAZOLE HYDROCHLORIDE
  3. ECOTRIN [Suspect]
     Active Substance: ASPIRIN
     Indication: CORONARY ARTERY DISEASE
     Dosage: CHRONIC
     Route: 048
  4. FOLVITE [Concomitant]
     Active Substance: FOLIC ACID
  5. WARFARIN 5MG [Suspect]
     Active Substance: WARFARIN
     Indication: VASCULAR DEVICE USER
     Dosage: CHRONIC
     Route: 048
  6. BACLOFEN. [Concomitant]
     Active Substance: BACLOFEN
  7. GLUCOTROL [Concomitant]
     Active Substance: GLIPIZIDE
  8. LEVAQUIN [Concomitant]
     Active Substance: LEVOFLOXACIN
  9. WARFARIN 5MG [Suspect]
     Active Substance: WARFARIN
     Indication: ATRIAL FIBRILLATION
     Dosage: CHRONIC
     Route: 048
  10. FE [Concomitant]
     Active Substance: IRON
  11. ZOCOR [Concomitant]
     Active Substance: SIMVASTATIN
  12. HUMULIN NOS [Concomitant]
     Active Substance: INSULIN HUMAN
  13. HALDOL [Concomitant]
     Active Substance: HALOPERIDOL

REACTIONS (4)
  - International normalised ratio increased [None]
  - Anaemia [None]
  - Oesophageal ulcer [None]
  - Upper gastrointestinal haemorrhage [None]

NARRATIVE: CASE EVENT DATE: 20151118
